FAERS Safety Report 4775675-8 (Version None)
Quarter: 2005Q3

REPORT INFORMATION
  Report Type: 
  Country: None (occurrence: None)
  Receive Date: 20050922
  Receipt Date: 20050915
  Transmission Date: 20060218
  Serious: Yes (Other)
  Sender: FDA-Public Use
  Company Number: PHEH2005US10306

PATIENT
  Age: 9 Year
  Sex: Male
  Weight: 20 kg

DRUGS (2)
  1. ADDERALL 5 [Suspect]
     Indication: ATTENTION DEFICIT/HYPERACTIVITY DISORDER
     Dates: start: 20041201, end: 20050501
  2. TRILEPTAL [Suspect]
     Indication: BIPOLAR DISORDER
     Dosage: 450 MG, QD
     Route: 048
     Dates: start: 20050301

REACTIONS (6)
  - ACCIDENTAL OVERDOSE [None]
  - AGGRESSION [None]
  - DRUG INTERACTION POTENTIATION [None]
  - EATING DISORDER SYMPTOM [None]
  - WEIGHT GAIN POOR [None]
  - WEIGHT INCREASED [None]
